FAERS Safety Report 4445253-9 (Version None)
Quarter: 2004Q3

REPORT INFORMATION
  Report Type: 
  Country: None (occurrence: None)
  Receive Date: 20040730
  Receipt Date: 20040531
  Transmission Date: 20050211
  Serious: No
  Sender: FDA-Public Use
  Company Number: PHEH2004US06040

PATIENT
  Sex: Female

DRUGS (1)
  1. GLEEVEC [Suspect]
     Indication: MEDICATION ERROR
     Dosage: 400 MG, QD

REACTIONS (3)
  - ACCIDENTAL OVERDOSE [None]
  - NAUSEA [None]
  - VOMITING [None]
